FAERS Safety Report 6105872-0 (Version None)
Quarter: 2009Q1

REPORT INFORMATION
  Report Type: 
  Country: None (occurrence: None)
  Receive Date: 20090306
  Receipt Date: 20090224
  Transmission Date: 20090719
  Serious: Yes (Life-Threatening, Hospitalization)
  Sender: FDA-Public Use
  Company Number: GB-ROCHE-612994

PATIENT
  Sex: Female
  Weight: 152.4 kg

DRUGS (8)
  1. ORLISTAT [Suspect]
     Indication: OBESITY
     Route: 048
     Dates: start: 20080521, end: 20090122
  2. AVANDAMET [Suspect]
     Dosage: DOSAGE ALSO REPORTED AS 4 TABLETS PER DAY, 2MG AND 500MG TWICE PER DAY
     Route: 048
  3. LIPITOR [Concomitant]
     Route: 048
  4. ASPIRIN [Concomitant]
     Route: 048
  5. AMIAS [Concomitant]
     Dosage: DOSAGE: UNKNOWN DAILY
     Route: 048
  6. AMARYL [Concomitant]
     Route: 048
  7. TENORETIC 100 [Concomitant]
     Dosage: DOSAGE: DAILY
     Route: 048
  8. ADALAT [Concomitant]
     Indication: BLOOD PRESSURE
     Dosage: DOSAGE: UNKNOWN DAILY
     Route: 048

REACTIONS (1)
  - CARDIAC FAILURE CONGESTIVE [None]
